FAERS Safety Report 11087940 (Version 1)
Quarter: 2015Q2

REPORT INFORMATION
  Report Type: Report from Study
  Country: VE (occurrence: VE)
  Receive Date: 20150504
  Receipt Date: 20150504
  Transmission Date: 20150821
  Serious: Yes (Hospitalization)
  Sender: FDA-Public Use
  Company Number: PHHY2015VE048796

PATIENT
  Sex: Female

DRUGS (3)
  1. EUTIROX [Concomitant]
     Active Substance: LEVOTHYROXINE SODIUM
     Indication: HYPOTHYROIDISM
     Dosage: 50 MG, QD
     Route: 065
  2. DIOVAN [Suspect]
     Active Substance: VALSARTAN
     Indication: HYPERTENSION
     Dosage: 160 MG, QD
     Route: 065
     Dates: start: 2014
  3. ACLASTA [Suspect]
     Active Substance: ZOLEDRONIC ACID
     Indication: OSTEOPOROSIS
     Dosage: 5 MG, (ANNUAL)
     Route: 065
     Dates: start: 20110925, end: 2015

REACTIONS (6)
  - Rotator cuff syndrome [Recovered/Resolved]
  - Cardiovascular disorder [Recovering/Resolving]
  - Abdominal pain upper [Recovered/Resolved]
  - Gastritis [Recovered/Resolved]
  - Vasculitis [Recovered/Resolved]
  - Diverticulitis [Recovered/Resolved]
